FAERS Safety Report 8282434-0 (Version None)
Quarter: 2012Q2

REPORT INFORMATION
  Report Type: 
  Country: None (occurrence: None)
  Receive Date: 20120410
  Receipt Date: 20120326
  Transmission Date: 20120825
  Serious: Yes (Hospitalization, Other)
  Sender: FDA-Public Use
  Company Number: AUR-APL-2012-01697

PATIENT
  Age: 45 Year
  Sex: Female
  Weight: 98 kg

DRUGS (6)
  1. LISINOPRIL AND HYDROCHLOROTHIAZIDE [Suspect]
     Indication: HYPERTENSION
     Dosage: (1 IN 1 D), ORAL
     Route: 048
     Dates: start: 20110305
  2. SYNTHROID [Concomitant]
  3. ENBREL [Suspect]
     Indication: PSORIASIS
     Dosage: 7.1429 MG (50 MG, 1 IN 1 WK), SUBCUTANEOUS, 7.1429 MG (50 MG, 1 IN 1 WK), SUBCUTANEOUS
     Route: 058
     Dates: start: 20050801, end: 20110301
  4. ENBREL [Suspect]
     Indication: PSORIASIS
     Dosage: 7.1429 MG (50 MG, 1 IN 1 WK), SUBCUTANEOUS, 7.1429 MG (50 MG, 1 IN 1 WK), SUBCUTANEOUS
     Route: 058
     Dates: start: 20110501, end: 20111101
  5. HUMIRA [Concomitant]
  6. METFORMIN HCL [Concomitant]

REACTIONS (7)
  - THERAPEUTIC RESPONSE DECREASED [None]
  - SYNCOPE [None]
  - INFLAMMATORY BOWEL DISEASE [None]
  - PSORIASIS [None]
  - HEART RATE DECREASED [None]
  - ABDOMINAL PAIN [None]
  - GASTROINTESTINAL INFLAMMATION [None]
